FAERS Safety Report 8618031-4 (Version None)
Quarter: 2012Q3

REPORT INFORMATION
  Report Type: 
  Country: None (occurrence: None)
  Receive Date: 20120824
  Receipt Date: 20120315
  Transmission Date: 20120928
  Serious: No
  Sender: FDA-Public Use
  Company Number: US-ASTRAZENECA-2012SE07802

PATIENT
  Age: 76 Year
  Sex: Male

DRUGS (6)
  1. PRO RED [Concomitant]
  2. COUGH MEDICINE WITH CODINE [Concomitant]
  3. CORTISPORIN EAR DROPS [Concomitant]
  4. SYMBICORT [Suspect]
     Dosage: 160/4.5 MCG, TWO PUFFS TWICE A DAY
     Route: 055
     Dates: start: 20120126
  5. DEPO-MEDROL [Concomitant]
  6. ZITHROMAX [Concomitant]

REACTIONS (4)
  - EAR INFECTION [None]
  - RESPIRATORY DISORDER [None]
  - COUGH [None]
  - MALAISE [None]
